FAERS Safety Report 15958017 (Version 8)
Quarter: 2019Q4

REPORT INFORMATION
  Report Type: Report from Study
  Country: BE (occurrence: BE)
  Receive Date: 20190213
  Receipt Date: 20191120
  Transmission Date: 20200122
  Serious: Yes (Hospitalization, Other)
  Sender: FDA-Public Use
  Company Number: BE-PFIZER INC-2019066459

PATIENT
  Age: 64 Year
  Sex: Male
  Weight: 75 kg

DRUGS (10)
  1. CISPLATIN. [Suspect]
     Active Substance: CISPLATIN
     Dosage: 128.1 MG, UNK
     Route: 042
     Dates: start: 20190124
  2. METHOTREXATE SODIUM. [Suspect]
     Active Substance: METHOTREXATE SODIUM
     Dosage: 54.9 MG, UNK
     Route: 042
     Dates: start: 20190123
  3. AVELUMAB [Suspect]
     Active Substance: AVELUMAB
     Indication: BLADDER CANCER
     Dosage: 10 MG/KG, CYCLIC (ONCE EVERY TWO WEEKS)
     Route: 042
     Dates: start: 20181227
  4. DOXORUBICIN HCL [Suspect]
     Active Substance: DOXORUBICIN HYDROCHLORIDE
     Dosage: 54.9 MG, UNK
     Route: 042
     Dates: start: 20190124
  5. VINBLASTINE [Suspect]
     Active Substance: VINBLASTINE
     Indication: BLADDER CANCER
     Dosage: CYCLIC (ONCE EVERY TWO WEEKS)
     Route: 042
     Dates: start: 20181227
  6. G-CSF [Concomitant]
     Active Substance: GRANULOCYTE COLONY-STIMULATING FACTOR NOS
     Dosage: 6 MG, UNK
     Route: 058
     Dates: start: 20190125
  7. METHOTREXATE SODIUM. [Suspect]
     Active Substance: METHOTREXATE SODIUM
     Indication: BLADDER CANCER
     Dosage: UNK, CYCLIC (ONCE EVERY TWO WEEKS)
     Route: 042
     Dates: start: 20181226
  8. CISPLATIN. [Suspect]
     Active Substance: CISPLATIN
     Indication: BLADDER CANCER
     Dosage: UNK, EVERY 3 WEEKS
     Route: 042
     Dates: start: 20181227
  9. DOXORUBICIN HCL [Suspect]
     Active Substance: DOXORUBICIN HYDROCHLORIDE
     Indication: BLADDER CANCER
     Dosage: UNK, CYCLIC (ONCE EVERY TWO WEEKS)
     Route: 042
     Dates: start: 20181227
  10. VINBLASTINE [Suspect]
     Active Substance: VINBLASTINE
     Dosage: 5.49 MG, UNK
     Route: 042
     Dates: start: 20190124

REACTIONS (4)
  - Mucosal inflammation [Recovered/Resolved]
  - Thrombocytopenia [Recovered/Resolved]
  - Neutropenia [Recovered/Resolved]
  - Pneumonia [Recovered/Resolved]

NARRATIVE: CASE EVENT DATE: 20190201
